FAERS Safety Report 16625826 (Version 1)
Quarter: 2019Q3

REPORT INFORMATION
  Report Type: Spontaneous
  Country: DE (occurrence: DE)
  Receive Date: 20190724
  Receipt Date: 20190724
  Transmission Date: 20191004
  Serious: Yes (Other)
  Sender: FDA-Public Use
  Company Number: DE-TEVA-2019-DE-1081170

PATIENT
  Age: 65 Year
  Sex: Female
  Weight: 63 kg

DRUGS (4)
  1. INDAPAMIDE. [Concomitant]
     Active Substance: INDAPAMIDE
     Indication: HYPERTENSION
     Dosage: DAILY DOSE: 1.5 MG MILLGRAM(S) EVERY DAYS
     Route: 048
     Dates: start: 20181218
  2. NOVAMINSULFON [Concomitant]
     Active Substance: METAMIZOLE
     Indication: HYPERTENSION
     Dosage: DAILY DOSE: 500 MG MILLGRAM(S) EVERY AS NECESSARY
     Route: 048
     Dates: start: 20190328
  3. ATORVASTATIN [Suspect]
     Active Substance: ATORVASTATIN
     Indication: HYPERCHOLESTEROLAEMIA
     Dosage: DAILY DOSE: 40 MG MILLGRAM(S) EVERY DAYS
     Route: 048
     Dates: start: 20190227, end: 20190404
  4. CANDESARTAN. [Concomitant]
     Active Substance: CANDESARTAN
     Indication: HYPERTENSION
     Dosage: DAILY DOSE: 16 MG MILLGRAM(S) EVERY DAYS
     Route: 048
     Dates: start: 20181016

REACTIONS (1)
  - Hepatitis toxic [Recovered/Resolved]

NARRATIVE: CASE EVENT DATE: 20190404
